FAERS Safety Report 9332837 (Version 3)
Quarter: 2013Q4

REPORT INFORMATION
  Report Type: Report from Study
  Country: JP (occurrence: JP)
  Receive Date: 20130606
  Receipt Date: 20131029
  Transmission Date: 20140711
  Serious: Yes (Hospitalization)
  Sender: FDA-Public Use
  Company Number: JP-PFIZER INC-2013167524

PATIENT
  Age: 60 Year
  Sex: Male
  Weight: 89.9 kg

DRUGS (16)
  1. REVATIO [Suspect]
     Indication: PULMONARY ARTERIAL HYPERTENSION
     Dosage: 20 MG, 2X/DAY
     Route: 048
     Dates: start: 20110315, end: 20120110
  2. LASIX [Concomitant]
     Indication: PULMONARY HYPERTENSION
     Dosage: UNK
     Route: 048
     Dates: end: 20120117
  3. DIOVAN ^NOVARTIS^ [Concomitant]
     Indication: PULMONARY HYPERTENSION
     Dosage: UNK
     Route: 048
     Dates: end: 20120117
  4. PREDNISOLONE [Concomitant]
     Indication: PULMONARY HYPERTENSION
     Dosage: UNK
     Route: 048
  5. AMOBAN [Concomitant]
     Dosage: UNK
     Route: 048
     Dates: start: 20110521, end: 20120110
  6. TAKEPRON [Concomitant]
     Indication: PROPHYLAXIS
     Dosage: UNK
     Route: 048
  7. CODEINE PHOSPHATE [Concomitant]
     Dosage: UNK
     Route: 048
     Dates: start: 20110531
  8. HYPEN [Concomitant]
     Dosage: UNK
     Route: 048
     Dates: start: 20110527, end: 20110614
  9. MUCOSOLVAN [Concomitant]
     Dosage: UNK
     Route: 048
     Dates: start: 20110527, end: 20110530
  10. CRAVIT [Concomitant]
     Dosage: UNK
     Route: 048
     Dates: start: 20110527, end: 20110530
  11. LOXONIN [Concomitant]
     Indication: PROPHYLAXIS
     Dosage: UNK
     Route: 062
     Dates: start: 20110719
  12. PL GRAN. [Concomitant]
     Dosage: UNK
     Route: 048
     Dates: start: 20110719
  13. MUCODYNE [Concomitant]
     Dosage: UNK
     Route: 048
     Dates: start: 20110824, end: 20111025
  14. PIRFENIDONE [Concomitant]
     Dosage: UNK
     Route: 048
     Dates: start: 20111004
  15. NAUZELIN [Concomitant]
     Indication: PROPHYLAXIS
     Dosage: UNK
     Route: 048
     Dates: start: 20111004, end: 20111219
  16. CLEANAL [Concomitant]
     Dosage: UNK
     Route: 048
     Dates: start: 20111025

REACTIONS (1)
  - Haemoglobin decreased [Recovered/Resolved]
